FAERS Safety Report 7096756-2 (Version None)
Quarter: 2010Q4

REPORT INFORMATION
  Report Type: 
  Country: None (occurrence: None)
  Receive Date: 20101111
  Receipt Date: 20091110
  Transmission Date: 20110411
  Serious: No
  Sender: FDA-Public Use
  Company Number: US-KINGPHARMUSA00001-K200901413

PATIENT
  Age: 54 Year
  Sex: Male
  Weight: 70.295 kg

DRUGS (6)
  1. EMBEDA [Suspect]
     Indication: PAIN
     Dosage: 30 MG, BID
     Route: 048
     Dates: start: 20091020, end: 20091101
  2. EMBEDA [Suspect]
     Indication: OSTEOARTHRITIS
     Dosage: 60 MG, BID
     Route: 048
     Dates: start: 20091101, end: 20091101
  3. ZOLOFT [Concomitant]
     Indication: DEPRESSION
     Dosage: 25 MG, QD
  4. ATENOLOL [Concomitant]
     Indication: HYPERTENSION
     Dosage: 50 MG, QD
  5. KLONOPIN [Concomitant]
     Indication: ANXIETY
     Dosage: 1 MG, TID
  6. LORTAB [Concomitant]
     Indication: BREAKTHROUGH PAIN
     Dosage: UNK

REACTIONS (6)
  - CHILLS [None]
  - CRYING [None]
  - DEPRESSION [None]
  - DRUG INEFFECTIVE [None]
  - HEADACHE [None]
  - NAUSEA [None]
